FAERS Safety Report 13476297 (Version 1)
Quarter: 2017Q2

REPORT INFORMATION
  Report Type: Spontaneous
  Country: US (occurrence: US)
  Receive Date: 20170424
  Receipt Date: 20170424
  Transmission Date: 20170830
  Serious: Yes (Other)
  Sender: FDA-Public Use
  Company Number: None

PATIENT
  Age: 51 Year
  Sex: Female
  Weight: 71.1 kg

DRUGS (1)
  1. GAMUNEX-C [Suspect]
     Active Substance: HUMAN IMMUNOGLOBULIN G
     Indication: CHRONIC INFLAMMATORY DEMYELINATING POLYRADICULONEUROPATHY
     Dosage: ?          OTHER FREQUENCY:Q 3 WEEKS;?
     Route: 042
     Dates: start: 20170405, end: 20170405

REACTIONS (7)
  - Blood pressure increased [None]
  - Eye disorder [None]
  - Lymphadenopathy [None]
  - Diarrhoea [None]
  - Abdominal distension [None]
  - Headache [None]
  - Nail discolouration [None]

NARRATIVE: CASE EVENT DATE: 20170405
